FAERS Safety Report 19477421 (Version 1)
Quarter: 2021Q2

REPORT INFORMATION
  Report Type: Spontaneous
  Country: US (occurrence: US)
  Receive Date: 20210630
  Receipt Date: 20210630
  Transmission Date: 20210717
  Serious: No
  Sender: FDA-Public Use
  Company Number: US-PFIZER INC-2021601417

PATIENT
  Age: 58 Year
  Sex: Female

DRUGS (4)
  1. XELJANZ [Suspect]
     Active Substance: TOFACITINIB CITRATE
     Indication: RHEUMATOID ARTHRITIS
     Dosage: 5 MG, 2X/DAY
     Route: 048
     Dates: start: 202103
  2. PROLAT [Concomitant]
  3. IBUPROFEN. [Concomitant]
     Active Substance: IBUPROFEN
  4. VITAMIN B12 [Concomitant]
     Active Substance: CYANOCOBALAMIN

REACTIONS (11)
  - Headache [Unknown]
  - Dysgraphia [Unknown]
  - Arthralgia [Unknown]
  - Emotional disorder [Unknown]
  - Rhinorrhoea [Unknown]
  - Chest pain [Unknown]
  - Hand deformity [Unknown]
  - Fatigue [Unknown]
  - Dry mouth [Unknown]
  - Cough [Unknown]
  - Osteoarthritis [Unknown]
